FAERS Safety Report 6655050-1 (Version None)
Quarter: 2010Q1

REPORT INFORMATION
  Report Type: 
  Country: None (occurrence: None)
  Receive Date: 20100329
  Receipt Date: 20091218
  Transmission Date: 20100710
  Serious: Yes (Other)
  Sender: FDA-Public Use
  Company Number: US-JNJFOC-20081203243

PATIENT
  Sex: Male

DRUGS (1)
  1. LEVAQUIN [Suspect]
     Indication: URINARY TRACT INFECTION
     Route: 048

REACTIONS (7)
  - ARTHROPATHY [None]
  - BONE DISORDER [None]
  - BONE PAIN [None]
  - LIGAMENT DISORDER [None]
  - SHOULDER OPERATION [None]
  - TENDON INJURY [None]
  - TENDON RUPTURE [None]
